FAERS Safety Report 5937524-1 (Version None)
Quarter: 2008Q4

REPORT INFORMATION
  Report Type: 
  Country: None (occurrence: None)
  Receive Date: 20081031
  Receipt Date: 20081020
  Transmission Date: 20090506
  Serious: Yes (Hospitalization)
  Sender: FDA-Public Use
  Company Number: JP-JNJFOC-20081003176

PATIENT
  Sex: Female
  Weight: 29 kg

DRUGS (15)
  1. REMICADE [Suspect]
     Dosage: 14TH INFUSION
     Route: 042
  2. REMICADE [Suspect]
     Dosage: INFUSION 2-13 ON UNSPECIFIED DATES
     Route: 042
  3. REMICADE [Suspect]
     Indication: RHEUMATOID ARTHRITIS
     Route: 042
  4. METOTREXATE [Suspect]
     Indication: RHEUMATOID ARTHRITIS
     Route: 048
  5. AZULFIDINE [Suspect]
     Indication: RHEUMATOID ARTHRITIS
     Route: 048
  6. METALCAPTASE [Suspect]
     Indication: RHEUMATOID ARTHRITIS
     Route: 048
  7. RHEUMATREX [Suspect]
     Indication: RHEUMATOID ARTHRITIS
     Route: 048
  8. PREDNISOLONE [Suspect]
     Indication: RHEUMATOID ARTHRITIS
     Route: 048
  9. BUCILLAMINE [Concomitant]
     Route: 048
  10. SULFASALAZINE [Concomitant]
  11. D-PENICILLAMINE [Concomitant]
     Route: 048
  12. NSAID [Concomitant]
  13. ANTIBIOTIC [Concomitant]
  14. BONALON [Concomitant]
     Indication: OSTEOPOROSIS
     Route: 048
  15. GASTER D [Concomitant]
     Indication: REFLUX OESOPHAGITIS
     Route: 048

REACTIONS (3)
  - LYMPHOPROLIFERATIVE DISORDER [None]
  - NEUROGENIC BLADDER [None]
  - PNEUMONIA [None]
